FAERS Safety Report 11446637 (Version 1)
Quarter: 2015Q3

REPORT INFORMATION
  Report Type: Spontaneous
  Country: US (occurrence: US)
  Receive Date: 20150831
  Receipt Date: 20150831
  Transmission Date: 20151125
  Serious: No
  Sender: FDA-Public Use
  Company Number: US-ELI_LILLY_AND_COMPANY-US200809002489

PATIENT
  Sex: Female

DRUGS (3)
  1. ASPIRIN. [Concomitant]
     Active Substance: ASPIRIN
  2. PLAVIX [Concomitant]
     Active Substance: CLOPIDOGREL BISULFATE
  3. CYMBALTA [Suspect]
     Active Substance: DULOXETINE HYDROCHLORIDE
     Indication: PERIPHERAL ARTERIAL OCCLUSIVE DISEASE
     Dosage: 60 MG, DAILY (1/D)
     Dates: start: 200808, end: 20080901

REACTIONS (6)
  - Dizziness [Not Recovered/Not Resolved]
  - Renal pain [Recovered/Resolved]
  - Blood urine present [Not Recovered/Not Resolved]
  - Fatigue [Not Recovered/Not Resolved]
  - Hyperhidrosis [Not Recovered/Not Resolved]
  - Somnolence [Not Recovered/Not Resolved]
